FAERS Safety Report 18108834 (Version 1)
Quarter: 2020Q3

REPORT INFORMATION
  Report Type: Spontaneous
  Country: AU (occurrence: AU)
  Receive Date: 20200804
  Receipt Date: 20200804
  Transmission Date: 20201103
  Serious: Yes (Hospitalization)
  Sender: FDA-Public Use
  Company Number: AU-GENERIC HEALTH PTY. LTD.-2020-04075

PATIENT
  Age: 65 Year
  Sex: Male

DRUGS (13)
  1. VITAMIN D [Suspect]
     Active Substance: VITAMIN D NOS
     Indication: HYPOCALCAEMIA
     Dosage: 1000 INTERNATIONAL UNIT, BID
     Route: 065
  2. CALCIUM ACETATE. [Suspect]
     Active Substance: CALCIUM ACETATE
     Indication: HYPOCALCAEMIA
     Dosage: 600 MILLIGRAM, QD (CALCIUM CARBONATE)
     Route: 065
  3. CALCIUM ACETATE. [Suspect]
     Active Substance: CALCIUM ACETATE
     Dosage: 1000 MILLIGRAM, QID, CALCIUM CITRATE
     Route: 065
  4. CALCIUM ACETATE. [Suspect]
     Active Substance: CALCIUM ACETATE
     Dosage: 3600 MILLIGRAM, QD, CALCIUM CARBONATE
     Route: 065
  5. VITAMIN D [Suspect]
     Active Substance: VITAMIN D NOS
     Indication: PROPHYLAXIS
     Dosage: 1000 IU QD
     Route: 065
  6. BICALUTAMIDE. [Concomitant]
     Active Substance: BICALUTAMIDE
     Indication: HORMONE-REFRACTORY PROSTATE CANCER
     Dosage: UNK
     Route: 065
  7. DEXAMETHASONE. [Concomitant]
     Active Substance: DEXAMETHASONE
     Indication: BONE RESORPTION TEST ABNORMAL
     Dosage: 4 MILLIGRAM, BID
     Route: 048
  8. CALCITRIOL. [Suspect]
     Active Substance: CALCITRIOL
     Indication: HYPOCALCAEMIA
     Dosage: 6 MICROGRAM QD
     Route: 048
  9. CALCIUM ACETATE. [Suspect]
     Active Substance: CALCIUM ACETATE
     Indication: HYPOCALCAEMIA
     Dosage: UNK UNK, QD, 10 PERCENT CALCIUM GLUCONATE (2.2MMOL/1G/10ML UP TO 44MMOL/DAY)
     Route: 042
  10. GOSERELIN [Concomitant]
     Active Substance: GOSERELIN
     Indication: HORMONE-REFRACTORY PROSTATE CANCER
     Dosage: UNK
     Route: 065
  11. DENOSUMAB [Suspect]
     Active Substance: DENOSUMAB
     Indication: METASTASES TO BONE
     Dosage: 1200 MG (SINGLE DOSE)
     Route: 058
  12. HYDROCHLOROTHIAZIDE. [Suspect]
     Active Substance: HYDROCHLOROTHIAZIDE
     Indication: HYPOCALCAEMIA
     Dosage: 25 MILLIGRAM QD
     Route: 065
  13. DEGARELIX [Concomitant]
     Active Substance: DEGARELIX
     Indication: HORMONE-REFRACTORY PROSTATE CANCER
     Dosage: UNK
     Route: 065

REACTIONS (6)
  - Muscle spasms [Unknown]
  - Drug ineffective [Unknown]
  - Hypocalcaemia [Not Recovered/Not Resolved]
  - Hypoaesthesia oral [Unknown]
  - Lethargy [Unknown]
  - Paraesthesia [Unknown]
